FAERS Safety Report 5976491-1 (Version None)
Quarter: 2008Q4

REPORT INFORMATION
  Report Type: 
  Country: None (occurrence: None)
  Receive Date: 20081126
  Receipt Date: 20081025
  Transmission Date: 20090506
  Serious: Yes (Other)
  Sender: FDA-Public Use
  Company Number: CHPA2008US18442

PATIENT
  Age: 42 Year
  Sex: Male

DRUGS (1)
  1. NICOTINE [Suspect]
     Indication: SMOKING CESSATION THERAPY
     Dosage: 14 MG, QD, TRANSDERMAL
     Route: 062
     Dates: start: 20081025, end: 20081025

REACTIONS (8)
  - GASTRIC ULCER HAEMORRHAGE [None]
  - HEADACHE [None]
  - MOUTH HAEMORRHAGE [None]
  - NAUSEA [None]
  - NERVOUSNESS [None]
  - OFF LABEL USE [None]
  - TREATMENT NONCOMPLIANCE [None]
  - TREMOR [None]
